FAERS Safety Report 5356346-6 (Version None)
Quarter: 2007Q2

REPORT INFORMATION
  Report Type: 
  Country: None (occurrence: None)
  Receive Date: 20070613
  Receipt Date: 20070605
  Transmission Date: 20071010
  Serious: Yes (Death, Other)
  Sender: FDA-Public Use
  Company Number: US-PFIZER INC-2007046458

PATIENT
  Sex: Male
  Weight: 83.5 kg

DRUGS (23)
  1. CAMPTOSAR [Suspect]
     Indication: METASTASIS
     Route: 042
  2. ARANESP [Concomitant]
  3. DECADRON [Concomitant]
  4. DIGOXIN [Concomitant]
  5. FELODIPINE [Concomitant]
  6. LEVOTHYROXINE SODIUM [Concomitant]
  7. LOMOTIL [Concomitant]
  8. FILGRASTIM [Concomitant]
  9. NITROGLYCERIN [Concomitant]
     Route: 048
  10. SIMVASTATIN [Concomitant]
  11. NEXIUM [Concomitant]
  12. ONDANSETRON HCL [Concomitant]
  13. CARBOPLATIN [Concomitant]
  14. PROCHLORPERAZINE EDISYLATE [Concomitant]
  15. DEXAMETHASONE 0.5MG TAB [Concomitant]
  16. ETOPOSIDE [Concomitant]
  17. FERROUS SULFATE [Concomitant]
  18. LEVOFLOXACIN [Concomitant]
  19. PEGFILGRASTIM [Concomitant]
  20. SODIUM CHLORIDE [Concomitant]
  21. POTASSIUM ACETATE [Concomitant]
  22. TOPOTECAN [Concomitant]
  23. CYCLOBENZAPRINE HCL [Concomitant]

REACTIONS (6)
  - DIARRHOEA [None]
  - DISEASE PROGRESSION [None]
  - DYSPHAGIA [None]
  - METASTASIS [None]
  - REGURGITATION [None]
  - UNEVALUABLE EVENT [None]
